FAERS Safety Report 11240622 (Version 3)
Quarter: 2018Q1

REPORT INFORMATION
  Report Type: Spontaneous
  Country: US (occurrence: US)
  Receive Date: 20150706
  Receipt Date: 20180109
  Transmission Date: 20180508
  Serious: Yes (Other)
  Sender: FDA-Public Use
  Company Number: US-PFIZER INC-2015220906

PATIENT
  Age: 63 Year
  Sex: Female
  Weight: 90 kg

DRUGS (15)
  1. WARFARIN [Concomitant]
     Active Substance: WARFARIN
     Dosage: 8MG FOR 4 DAY; 6MG ON 2 DAYS, 1 AND HALF TABLET; 4MG FOR ONE DAY
  2. ESTRADIOL. [Concomitant]
     Active Substance: ESTRADIOL
     Indication: MENOPAUSE
  3. LISINOPRIL. [Concomitant]
     Active Substance: LISINOPRIL
     Indication: BLOOD PRESSURE MEASUREMENT
     Dosage: 20 MG, 1X/DAY
  4. PRAVASTATIN SODIUM. [Concomitant]
     Active Substance: PRAVASTATIN SODIUM
     Indication: BLOOD CHOLESTEROL
     Dosage: 40 MG, 1X/DAY
  5. VITAMIN D2 [Concomitant]
     Active Substance: ERGOCALCIFEROL
     Indication: OSTEOPENIA
     Dosage: 1.25 MG, WEEKLY
  6. ESTRADIOL. [Concomitant]
     Active Substance: ESTRADIOL
     Indication: OSTEOPENIA
     Dosage: 0.5 MG, 1X/DAY
  7. MEDROXYPROGESTERONE [Concomitant]
     Active Substance: MEDROXYPROGESTERONE
     Indication: MENOPAUSE
  8. WARFARIN [Concomitant]
     Active Substance: WARFARIN
     Dosage: 8MG FOR 3 DAYS/WEEK; 6MG THREE DAYS AND 4MG ONE DAY A WEEK
  9. SINGULAIR [Concomitant]
     Active Substance: MONTELUKAST SODIUM
     Indication: SINUS DISORDER
     Dosage: 1 DF, 1X/DAY (AT NIGHT AS NEEDED)
  10. SINGULAIR [Concomitant]
     Active Substance: MONTELUKAST SODIUM
     Indication: HYPERSENSITIVITY
  11. REVATIO [Suspect]
     Active Substance: SILDENAFIL CITRATE
     Indication: PULMONARY ARTERIAL HYPERTENSION
     Dosage: 20 MG, 3X/DAY
     Route: 048
     Dates: start: 2002
  12. REVATIO [Suspect]
     Active Substance: SILDENAFIL CITRATE
     Dosage: 20 MG, 3X/DAY (ONE TABLET THREE TIMES A DAY?
  13. CALCIUM CITRATE WITH VITAMIN D [Concomitant]
     Active Substance: CALCIUM CITRATE\VITAMIN D
     Dosage: UNK, (TAKES TWO A DAY EXCEPT DAY SHE TAKES PRESCRITION VITAMIN D2)
  14. MULTI VITAMIN [Concomitant]
     Active Substance: VITAMINS
     Dosage: UNK, 1X/DAY
  15. MEDROXYPROGESTERONE [Concomitant]
     Active Substance: MEDROXYPROGESTERONE
     Indication: OSTEOPENIA
     Dosage: 2.5 MG, 1X/DAY

REACTIONS (7)
  - Nasal congestion [Unknown]
  - Diverticulitis [Recovered/Resolved]
  - Eye haemorrhage [Unknown]
  - Abdominal pain upper [Not Recovered/Not Resolved]
  - Body height decreased [Unknown]
  - Epistaxis [Unknown]
  - Amnesia [Unknown]

NARRATIVE: CASE EVENT DATE: 2015
